FAERS Safety Report 12729120 (Version 2)
Quarter: 2016Q3

REPORT INFORMATION
  Report Type: Spontaneous
  Country: GB (occurrence: GB)
  Receive Date: 20160909
  Receipt Date: 20160914
  Transmission Date: 20161109
  Serious: Yes (Death, Hospitalization, Other)
  Sender: FDA-Public Use
  Company Number: GB-AMGEN-GBRSP2016119023

PATIENT
  Sex: Male

DRUGS (1)
  1. ARANESP [Suspect]
     Active Substance: DARBEPOETIN ALFA
     Indication: PRODUCT USED FOR UNKNOWN INDICATION
     Dosage: 40MCG/.04ML 4 SYRINGE
     Route: 065

REACTIONS (6)
  - Death [Fatal]
  - Limb injury [Unknown]
  - Haemorrhage subcutaneous [Unknown]
  - Skin injury [Unknown]
  - Pain in extremity [Unknown]
  - Nerve injury [Unknown]
